FAERS Safety Report 24638020 (Version 1)
Quarter: 2024Q4

REPORT INFORMATION
  Report Type: Spontaneous
  Country: US (occurrence: US)
  Receive Date: 20241119
  Receipt Date: 20241119
  Transmission Date: 20250114
  Serious: Yes (Hospitalization, Other)
  Sender: PFIZER
  Company Number: US-PFIZER INC-PV202400149284

PATIENT
  Age: 71 Year
  Sex: Male
  Weight: 61.2 kg

DRUGS (3)
  1. VYNDAMAX [Suspect]
     Active Substance: TAFAMIDIS
     Indication: Cardiac failure
     Dosage: 61 MG, 1X/DAY (EVERY DAY)
     Route: 048
     Dates: start: 20240914
  2. VYNDAMAX [Suspect]
     Active Substance: TAFAMIDIS
     Indication: Cardiac amyloidosis
  3. TORSEMIDE [Concomitant]
     Active Substance: TORSEMIDE
     Dosage: UNK

REACTIONS (12)
  - Pulmonary oedema [Unknown]
  - Urinary tract infection [Unknown]
  - Perineal fistula [Unknown]
  - Fluid retention [Unknown]
  - Brain natriuretic peptide increased [Unknown]
  - Troponin increased [Unknown]
  - Chronic kidney disease [Unknown]
  - Blood urea increased [Unknown]
  - Blood creatinine increased [Unknown]
  - Haemoglobin decreased [Unknown]
  - Haematocrit decreased [Unknown]
  - Blood glucose increased [Unknown]

NARRATIVE: CASE EVENT DATE: 20241001
